FAERS Safety Report 4799811-2 (Version None)
Quarter: 2005Q4

REPORT INFORMATION
  Report Type: 
  Country: None (occurrence: None)
  Receive Date: 20051012
  Receipt Date: 20051007
  Transmission Date: 20060501
  Serious: Yes (Hospitalization, Other)
  Sender: FDA-Public Use
  Company Number: HQWYE935010OCT05

PATIENT
  Age: 55 Year
  Sex: Male

DRUGS (7)
  1. EFFEXOR [Suspect]
     Dosage: 75MG , ORAL
     Route: 048
  2. CLOZARIL [Suspect]
     Indication: SCHIZOPHRENIA
     Dosage: SEE IMAGE
     Route: 048
  3. QUETIAPINE FUMARATE [Suspect]
     Dosage: 100 MG, ORAL
     Route: 048
  4. VALIUM [Suspect]
  5. . [Concomitant]
  6. . [Concomitant]
  7. . [Concomitant]

REACTIONS (8)
  - DIARRHOEA [None]
  - HEPATIC ENZYME INCREASED [None]
  - LEUKOCYTOSIS [None]
  - NEUTROPHILIA [None]
  - PSYCHOTIC DISORDER [None]
  - TARDIVE DYSKINESIA [None]
  - TREATMENT NONCOMPLIANCE [None]
  - VOMITING [None]
